FAERS Safety Report 12739193 (Version 1)
Quarter: 2016Q3

REPORT INFORMATION
  Report Type: Spontaneous
  Country: US (occurrence: US)
  Receive Date: 20160913
  Receipt Date: 20160913
  Transmission Date: 20161109
  Serious: No
  Sender: FDA-Public Use
  Company Number: None

PATIENT
  Age: 38 Year
  Sex: Male
  Weight: 81 kg

DRUGS (2)
  1. FINASTERIDE. [Concomitant]
     Active Substance: FINASTERIDE
  2. OFLOXACINE [Suspect]
     Active Substance: OFLOXACIN
     Indication: DIARRHOEA INFECTIOUS
     Route: 048
     Dates: start: 20160907, end: 20160912

REACTIONS (2)
  - Tendon pain [None]
  - Sleep disorder [None]

NARRATIVE: CASE EVENT DATE: 20160911
